FAERS Safety Report 6482847-3 (Version None)
Quarter: 2009Q4

REPORT INFORMATION
  Report Type: 
  Country: None (occurrence: None)
  Receive Date: 20091209
  Receipt Date: 20091202
  Transmission Date: 20100525
  Serious: Yes (Other)
  Sender: FDA-Public Use
  Company Number: US-JNJFOC-20091201398

PATIENT
  Age: 3 Year
  Sex: Male
  Weight: 19.05 kg

DRUGS (1)
  1. CHILDREN'S TYLENOL PLUS MULTI-SYMPTOM COLD GRAPE [Suspect]
     Indication: NASOPHARYNGITIS

REACTIONS (3)
  - DYSPNOEA [None]
  - WHEEZING [None]
  - WRONG DRUG ADMINISTERED [None]
